FAERS Safety Report 8396300 (Version 5)
Quarter: 2014Q1

REPORT INFORMATION
  Report Type: Spontaneous
  Country: US (occurrence: US)
  Receive Date: 20120208
  Receipt Date: 20140205
  Transmission Date: 20141002
  Serious: Yes (Other)
  Sender: FDA-Public Use
  Company Number: US-PFIZER INC-2012027947

PATIENT
  Sex: Female

DRUGS (6)
  1. PREMARIN [Suspect]
     Dosage: UNK
  2. PREMARIN [Suspect]
     Dosage: UNK
     Route: 067
  3. CALAN SR [Suspect]
     Dosage: UNK
     Dates: start: 1991
  4. NEURONTIN [Suspect]
     Dosage: UNK
  5. PROTONIX [Suspect]
     Dosage: UNK
  6. NITROSTAT [Suspect]
     Dosage: UNK

REACTIONS (3)
  - Myocardial infarction [Unknown]
  - Arthropathy [Unknown]
  - Arthralgia [Unknown]
